FAERS Safety Report 8775649 (Version 5)
Quarter: 2012Q4

REPORT INFORMATION
  Report Type: Report from Study
  Country: US (occurrence: US)
  Receive Date: 20120909
  Receipt Date: 20121126
  Transmission Date: 20130627
  Serious: Yes (Hospitalization, Other)
  Sender: FDA-Public Use
  Company Number: US-ABBOTT-12P-163-0975585-00

PATIENT
  Age: 50 Year
  Sex: Female
  Weight: 72.19 kg

DRUGS (20)
  1. HUMIRA [Suspect]
     Indication: PSORIATIC ARTHROPATHY
     Dates: start: 200510, end: 200712
  2. HUMIRA [Suspect]
     Dates: start: 200804, end: 2009
  3. HUMIRA [Suspect]
     Dates: start: 20120830
  4. SULFASALAZINE [Concomitant]
     Indication: PSORIATIC ARTHROPATHY
     Dates: start: 201107
  5. HORMONE REPLACEMENT [Concomitant]
     Indication: OSTEOPOROSIS
     Dates: start: 1998
  6. ESTRING [Concomitant]
     Indication: OSTEOPOROSIS
  7. PROLIA [Concomitant]
     Indication: OSTEOPOROSIS
     Dates: end: 201108
  8. PROLIA [Concomitant]
     Dates: end: 20120202
  9. PROLIA [Concomitant]
     Dates: end: 20120830
  10. LEXAPRO [Concomitant]
     Indication: DEPRESSION
  11. LEXAPRO [Concomitant]
     Indication: ANXIETY
  12. OXYBUTYNIN [Concomitant]
     Indication: BLADDER SPASM
  13. SYNTHROID [Concomitant]
     Indication: HYPOTHYROIDISM
  14. LOPRESSOR [Concomitant]
     Indication: HYPERTENSION
  15. TYLENOL [Concomitant]
     Indication: PAIN
  16. PERCOCET [Concomitant]
     Indication: PAIN
  17. MEDROL [Concomitant]
     Indication: POLYARTHRITIS
  18. SINGULAIR [Concomitant]
     Indication: PRODUCT USED FOR UNKNOWN INDICATION
  19. CELEBREX [Concomitant]
     Indication: PRODUCT USED FOR UNKNOWN INDICATION
  20. TAMIFLU [Concomitant]
     Indication: PRODUCT USED FOR UNKNOWN INDICATION

REACTIONS (14)
  - Metabolic acidosis [Unknown]
  - Renal failure acute [Unknown]
  - Escherichia sepsis [Recovered/Resolved]
  - Nephrolithiasis [Recovered/Resolved]
  - Influenza like illness [Recovered/Resolved]
  - Hydronephrosis [Unknown]
  - Renal haematoma [Unknown]
  - Fluid overload [Unknown]
  - Encephalopathy [Unknown]
  - Pleural effusion [Unknown]
  - Hydronephrosis [Unknown]
  - Perinephric effusion [Unknown]
  - Cholelithiasis [Unknown]
  - Urosepsis [Unknown]
